FAERS Safety Report 8218210-4 (Version None)
Quarter: 2012Q1

REPORT INFORMATION
  Report Type: 
  Country: None (occurrence: None)
  Receive Date: 20120319
  Receipt Date: 20120315
  Transmission Date: 20120608
  Serious: Yes (Hospitalization)
  Sender: FDA-Public Use
  Company Number: SE-ROCHE-1049154

PATIENT
  Age: 63 Year
  Sex: Female

DRUGS (11)
  1. ACTEMRA [Suspect]
     Indication: RHEUMATOID ARTHRITIS
     Dosage: 20 MG/ML
     Dates: start: 20111006, end: 20120217
  2. PREDNISOLONE [Concomitant]
  3. FOLIC ACID [Concomitant]
  4. KALCIPOS-D [Concomitant]
  5. OMEPRAZOLE [Concomitant]
  6. ASPIRIN [Concomitant]
  7. METOPROLOL SUCCINATE [Concomitant]
  8. ACETAMINOPHEN [Concomitant]
  9. METOJECT (NON-ROCHE/NON-COMPARATOR) [Concomitant]
     Route: 011
  10. COZAAR [Concomitant]
  11. TRAMADOL HCL [Concomitant]

REACTIONS (1)
  - MYOCARDIAL INFARCTION [None]
